FAERS Safety Report 5604662-2 (Version None)
Quarter: 2008Q1

REPORT INFORMATION
  Report Type: 
  Country: None (occurrence: None)
  Receive Date: 20080124
  Receipt Date: 20080124
  Transmission Date: 20080703
  Serious: No
  Sender: FDA-Public Use
  Company Number: None

PATIENT
  Age: 34 Year
  Sex: Female
  Weight: 53.5244 kg

DRUGS (1)
  1. CHANTIX [Suspect]
     Indication: SMOKING CESSATION THERAPY
     Dosage: 1MG 2X PER DAY PO
     Route: 048
     Dates: start: 20071224, end: 20080105

REACTIONS (8)
  - ANGER [None]
  - ANHEDONIA [None]
  - CRYING [None]
  - DEPRESSION [None]
  - MIGRAINE [None]
  - NIGHTMARE [None]
  - PAIN OF SKIN [None]
  - SCREAMING [None]
